FAERS Safety Report 8969322 (Version 1)
Quarter: 2012Q4

REPORT INFORMATION
  Report Type: 
  Country: US (occurrence: US)
  Receive Date: 20121218
  Receipt Date: 20121218
  Transmission Date: 20130627
  Serious: No
  Sender: FDA-Public Use
  Company Number: US-BRISTOL-MYERS SQUIBB COMPANY-16279440

PATIENT
  Age: 17 Year
  Sex: Male
  Weight: 69.84 kg

DRUGS (2)
  1. ABILIFY TABS 2 MG [Suspect]
     Indication: IRRITABILITY
     Dosage: Not scored
     Dates: start: 201110
  2. ABILIFY TABS 2 MG [Suspect]
     Indication: AUTISM
     Dosage: Not scored
     Dates: start: 201110

REACTIONS (2)
  - Insomnia [Unknown]
  - Somnolence [Unknown]
